FAERS Safety Report 4893581-5 (Version None)
Quarter: 2005Q4

REPORT INFORMATION
  Report Type: 
  Country: None (occurrence: None)
  Receive Date: 20051223
  Receipt Date: 20051116
  Transmission Date: 20060501
  Serious: No
  Sender: FDA-Public Use
  Company Number: 2005PV004541

PATIENT
  Age: 59 Year
  Sex: Female
  Weight: 74.8435 kg

DRUGS (3)
  1. SYMLIN [Suspect]
     Indication: DIABETES MELLITUS MALNUTRITION-RELATED
     Dosage: 120 MCG;BID;SC
     Route: 058
     Dates: start: 20051001, end: 20050101
  2. SYMLIN [Suspect]
     Indication: DIABETES MELLITUS MALNUTRITION-RELATED
     Dosage: 120 MCG;BID;SC
     Route: 058
     Dates: start: 20051101
  3. LANTUS [Concomitant]

REACTIONS (5)
  - ASTHENIA [None]
  - BLOOD GLUCOSE DECREASED [None]
  - BLOOD GLUCOSE INCREASED [None]
  - HYPERHIDROSIS [None]
  - TREMOR [None]
